FAERS Safety Report 22369283 (Version 1)
Quarter: 2023Q2

REPORT INFORMATION
  Report Type: Spontaneous
  Country: US (occurrence: US)
  Receive Date: 20230526
  Receipt Date: 20230526
  Transmission Date: 20230721
  Serious: Yes (Other)
  Sender: FDA-Public Use
  Company Number: US-PIRAMAL PHARMA LIMITED-2023-PEL-000308

PATIENT

DRUGS (3)
  1. GABLOFEN [Suspect]
     Active Substance: BACLOFEN
     Indication: Muscle spasticity
     Dosage: 485.6 MCG/DAY
     Route: 037
  2. GABLOFEN [Suspect]
     Active Substance: BACLOFEN
     Dosage: BOLUSES AT 12, 6, 12 AND 6
     Route: 037
  3. MORPHINE [Suspect]
     Active Substance: MORPHINE
     Indication: Muscle spasticity
     Dosage: 80.93 MCG/DAY
     Route: 037

REACTIONS (2)
  - Seizure [Unknown]
  - Off label use [Unknown]
